FAERS Safety Report 8025917-0 (Version None)
Quarter: 2012Q1

REPORT INFORMATION
  Report Type: 
  Country: None (occurrence: None)
  Receive Date: 20120105
  Receipt Date: 20110427
  Transmission Date: 20120608
  Serious: No
  Sender: FDA-Public Use
  Company Number: US-ABBOTT-11P-163-0718897-00

PATIENT
  Sex: Female
  Weight: 65.83 kg

DRUGS (5)
  1. LEVOTHYROXINE SODIUM [Suspect]
     Indication: PRODUCT USED FOR UNKNOWN INDICATION
  2. NORVASC [Concomitant]
     Indication: HYPERTENSION
     Dates: start: 20110121
  3. CLONIDINE [Suspect]
     Indication: PRODUCT USED FOR UNKNOWN INDICATION
     Dates: start: 20110111
  4. SYNTHROID [Suspect]
     Indication: HYPOTHYROIDISM
     Dates: start: 20100917
  5. AMLODIPINE [Suspect]
     Indication: HYPERTENSION
     Dates: start: 20101201, end: 20101201

REACTIONS (4)
  - TABLET PHYSICAL ISSUE [None]
  - HALLUCINATION [None]
  - VISUAL IMPAIRMENT [None]
  - CHROMATOPSIA [None]
